FAERS Safety Report 18606014 (Version 4)
Quarter: 2021Q2

REPORT INFORMATION
  Report Type: Spontaneous
  Country: US (occurrence: US)
  Receive Date: 20201211
  Receipt Date: 20210503
  Transmission Date: 20210717
  Serious: Yes (Other)
  Sender: FDA-Public Use
  Company Number: US-PERRIGO-20US017676

PATIENT
  Sex: Female
  Weight: 130.16 kg

DRUGS (2)
  1. PREVACID 24 HR [Suspect]
     Active Substance: LANSOPRAZOLE
     Indication: GASTROOESOPHAGEAL REFLUX DISEASE
     Dosage: 15 MG, UNKNOWN
     Route: 048
     Dates: start: 20090518, end: 201410
  2. PREVACID [Suspect]
     Active Substance: LANSOPRAZOLE
     Indication: GASTROOESOPHAGEAL REFLUX DISEASE
     Dosage: 15 MG, UNKNOWN
     Route: 048
     Dates: start: 200801, end: 20090517

REACTIONS (11)
  - Hyperchlorhydria [Unknown]
  - Renal injury [Unknown]
  - Micturition urgency [Unknown]
  - Chronic kidney disease [Not Recovered/Not Resolved]
  - Renal failure [Unknown]
  - Renal cyst [Unknown]
  - Urinary tract infection [Unknown]
  - Rebound effect [Unknown]
  - Dysuria [Unknown]
  - Renal impairment [Unknown]
  - Pollakiuria [Unknown]

NARRATIVE: CASE EVENT DATE: 2014
